FAERS Safety Report 4514142-3 (Version None)
Quarter: 2004Q4

REPORT INFORMATION
  Report Type: 
  Country: None (occurrence: None)
  Receive Date: 20041124
  Receipt Date: 20041110
  Transmission Date: 20050328
  Serious: Yes (Hospitalization)
  Sender: FDA-Public Use
  Company Number: 2004AP05725

PATIENT
  Age: 40 Year

DRUGS (6)
  1. OMEPRAZOLE [Suspect]
     Dosage: 40 MG DAILY PO
     Route: 048
  2. BENZTROPINE MESYLATE [Suspect]
     Dosage: 2 MG DAILY PO
     Route: 048
  3. LITHIUM CARBONATE [Suspect]
     Indication: PSYCHOTIC DISORDER
     Dosage: 750 MG DAILY PO
     Route: 048
  4. THYROXINE SODIUM [Suspect]
     Dosage: 1 DF DAILY PO
     Route: 048
  5. AMISULPRIDE [Suspect]
     Indication: DEPRESSION
     Dosage: 800 MG DAILY PO
     Route: 048
  6. IMIPRAMINE HCL [Suspect]
     Indication: BASEDOW'S DISEASE
     Dosage: 200 MG DAILY PO
     Route: 048

REACTIONS (4)
  - DRY MOUTH [None]
  - DYSPHAGIA [None]
  - OESOPHAGEAL CANDIDIASIS [None]
  - REFLUX OESOPHAGITIS [None]
